FAERS Safety Report 7640645-9 (Version None)
Quarter: 2011Q3

REPORT INFORMATION
  Report Type: 
  Country: None (occurrence: None)
  Receive Date: 20110721
  Receipt Date: 20110708
  Transmission Date: 20111222
  Serious: Yes (Other)
  Sender: FDA-Public Use
  Company Number: 2011SP032150

PATIENT
  Age: 7 Month
  Sex: Female

DRUGS (2)
  1. TRIMETON A/R (CHLORPHENIRAMINE MALEATE) [Suspect]
     Indication: DRUG HYPERSENSITIVITY
     Dosage: 30 MG; IV
     Route: 042
     Dates: start: 20110314, end: 20110315
  2. DOBETIN [Concomitant]

REACTIONS (3)
  - AGITATION [None]
  - TREMOR [None]
  - DYSKINESIA [None]
